FAERS Safety Report 8757300 (Version 1)
Quarter: 2012Q4

REPORT INFORMATION
  Report Type: 
  Country: US (occurrence: US)
  Receive Date: 20120830
  Receipt Date: 20120830
  Transmission Date: 20130627
  Serious: Yes (Hospitalization)
  Sender: FDA-Public Use
  Company Number: US-AMGEN-USASP2012053540

PATIENT
  Age: 62 Year
  Sex: Female

DRUGS (1)
  1. ENBREL [Suspect]
     Indication: RHEUMATOID ARTHRITIS
     Dosage: 25 mg, 2 times/wk
     Dates: start: 19981201, end: 20120615

REACTIONS (4)
  - Scoliosis [Recovered/Resolved]
  - Intervertebral disc degeneration [Recovered/Resolved]
  - Nervous system disorder [Recovered/Resolved]
  - Rheumatoid arthritis [Not Recovered/Not Resolved]
